FAERS Safety Report 8185327-2 (Version None)
Quarter: 2012Q1

REPORT INFORMATION
  Report Type: 
  Country: None (occurrence: None)
  Receive Date: 20120305
  Receipt Date: 20120228
  Transmission Date: 20120608
  Serious: Yes (Other)
  Sender: FDA-Public Use
  Company Number: PHEH2011US012338

PATIENT
  Sex: Female
  Weight: 176 kg

DRUGS (11)
  1. RECLAST [Suspect]
     Indication: OSTEOPOROSIS
     Dosage: 5 MG
     Route: 042
     Dates: start: 20111011
  2. VITAMIN B-12 [Concomitant]
     Dosage: UNK UKN, UNK
  3. ASPIRIN [Concomitant]
     Dosage: 81 MG, DAILY
     Route: 048
  4. CALCIUM [Concomitant]
     Dosage: 500 MG, DAILY
     Route: 048
  5. SIMVASTATIN [Concomitant]
     Dosage: 20 MG, QHS
     Route: 048
  6. SYNTHROID [Concomitant]
     Indication: HYPOTHYROIDISM
     Dosage: 112 UG, DAILY
     Route: 048
  7. METFORMIN HCL [Concomitant]
     Indication: TYPE 2 DIABETES MELLITUS
     Dosage: 500 MG, DAILY
     Route: 048
     Dates: start: 20110718
  8. TOPROL-XL [Concomitant]
     Indication: HYPERTENSION
     Dosage: 50 MG, UNK
     Route: 048
  9. TOPEROL [Concomitant]
     Dosage: UNK UKN, UNK
  10. LISINOPRIL [Concomitant]
     Indication: HYPERTENSION
     Dosage: 5 MG, BID
     Route: 048
  11. VITAMIN D [Concomitant]
     Dosage: 50000 IU, QMO
     Route: 048

REACTIONS (15)
  - BLISTER [None]
  - MYALGIA [None]
  - NAUSEA [None]
  - PYREXIA [None]
  - VOMITING [None]
  - INFLUENZA LIKE ILLNESS [None]
  - HYPERSENSITIVITY [None]
  - CHILLS [None]
  - RASH [None]
  - ARTHRALGIA [None]
  - PARAESTHESIA [None]
  - BONE PAIN [None]
  - PAIN IN EXTREMITY [None]
  - HEADACHE [None]
  - DIARRHOEA [None]
